FAERS Safety Report 8479573 (Version 4)
Quarter: 2013Q2

REPORT INFORMATION
  Report Type: Spontaneous
  Country: US (occurrence: None)
  Receive Date: 20120321
  Receipt Date: 20130403
  Transmission Date: 20140414
  Serious: Yes (Hospitalization, Other)
  Sender: FDA-Public Use
  Company Number: JPI-P-020264

PATIENT
  Age: 54 Year
  Sex: Male

DRUGS (3)
  1. XYREM [Suspect]
     Indication: NARCOLEPSY
     Dosage: 4.5 GM (2.25 GM, 2 IN 1 D), ORAL
     Dates: start: 20091229
  2. FUROSEMIDE [Concomitant]
  3. METOLAZONE [Concomitant]

REACTIONS (4)
  - Arterial occlusive disease [None]
  - Back pain [None]
  - Weight increased [None]
  - Vascular graft [None]
